FAERS Safety Report 5241075-X (Version None)
Quarter: 2007Q1

REPORT INFORMATION
  Report Type: 
  Country: None (occurrence: None)
  Receive Date: 20070214
  Receipt Date: 20070214
  Transmission Date: 20070707
  Serious: Yes (Other)
  Sender: FDA-Public Use
  Company Number: None

PATIENT
  Sex: Male

DRUGS (1)
  1. GADOLINIUM [Suspect]
     Indication: ANGIOGRAM
     Dosage: X1 IV
     Route: 042

REACTIONS (1)
  - NEPHROGENIC FIBROSING DERMOPATHY [None]
